FAERS Safety Report 4957751-X (Version None)
Quarter: 2006Q1

REPORT INFORMATION
  Report Type: 
  Country: None (occurrence: None)
  Receive Date: 20060324
  Receipt Date: 20060309
  Transmission Date: 20060701
  Serious: Yes (Other)
  Sender: FDA-Public Use
  Company Number: DE-2006-005197

PATIENT
  Age: 49 Year
  Sex: Female

DRUGS (8)
  1. BETAFERON (INTERFERON BETA - 1B) INJECTION, 250 UG [Suspect]
     Dosage: SUBCUTANEOUS
     Route: 058
     Dates: start: 19960101
  2. PREDNISOLONE [Concomitant]
  3. MOLSIDOMINE [Concomitant]
  4. ISCOVER (CLOPIDOGREL SULFATE) [Concomitant]
  5. ENALAPRIL MALEATE [Concomitant]
  6. METOPROLOL [Concomitant]
  7. PROTHYRID (LEVOTHYROXINE SODIUM, LIOTHYRONINE HYDROCHLORIDE) [Concomitant]
  8. SPASMEX (TROSPIUM CHLORIDE) [Concomitant]

REACTIONS (1)
  - MYOCARDIAL INFARCTION [None]
